FAERS Safety Report 10507148 (Version 1)
Quarter: 2014Q4

REPORT INFORMATION
  Report Type: Spontaneous
  Country: US (occurrence: None)
  Receive Date: 20141008
  Receipt Date: 20141008
  Transmission Date: 20150528
  Serious: Yes (Life-Threatening, Hospitalization, Disabling)
  Sender: FDA-Public Use
  Company Number: None

PATIENT
  Age: 35 Year
  Sex: Female
  Weight: 90.72 kg

DRUGS (3)
  1. INVEGA SUSTENNA [Suspect]
     Active Substance: PALIPERIDONE PALMITATE
     Indication: PROPHYLAXIS
     Dosage: ONE SHOT, ONE SHOT PER MONTH, INTO THE MUSCLE
     Dates: start: 20140327, end: 20140630
  2. INVEGA SUSTENNA [Suspect]
     Active Substance: PALIPERIDONE PALMITATE
     Indication: PSYCHOTIC DISORDER
     Dosage: ONE SHOT, ONE SHOT PER MONTH, INTO THE MUSCLE
     Dates: start: 20140327, end: 20140630
  3. KLONOPIN [Suspect]
     Active Substance: CLONAZEPAM
     Indication: ILL-DEFINED DISORDER
     Dosage: 1 PILL, TWICE DAILY
     Dates: start: 20140521, end: 20140604

REACTIONS (11)
  - Anxiety [None]
  - Homicidal ideation [None]
  - Formication [None]
  - Tremor [None]
  - Pain [None]
  - Speech disorder [None]
  - Amnesia [None]
  - Motor dysfunction [None]
  - Suicidal ideation [None]
  - Overdose [None]
  - Somnolence [None]

NARRATIVE: CASE EVENT DATE: 20140607
